FAERS Safety Report 6375791-3 (Version None)
Quarter: 2009Q3

REPORT INFORMATION
  Report Type: 
  Country: None (occurrence: None)
  Receive Date: 20090922
  Receipt Date: 20090922
  Transmission Date: 20100115
  Serious: No
  Sender: FDA-Public Use
  Company Number: None

PATIENT

DRUGS (5)
  1. ATENOLOL [Suspect]
     Indication: HYPERTENSION
     Dosage: TWO TIMES PER DAY  25MG EACH
     Dates: start: 20090701
  2. ATENOLOL [Suspect]
     Indication: TACHYCARDIA
     Dosage: TWO TIMES PER DAY  25MG EACH
     Dates: start: 20090701
  3. ATENOLOL [Suspect]
     Indication: HYPERTENSION
     Dosage: TWO TIMES PER DAY  25MG EACH
     Dates: start: 20090801
  4. ATENOLOL [Suspect]
     Indication: TACHYCARDIA
     Dosage: TWO TIMES PER DAY  25MG EACH
     Dates: start: 20090801
  5. TENORMIN [Suspect]

REACTIONS (4)
  - DRUG INEFFECTIVE [None]
  - HYPERTENSION [None]
  - TACHYCARDIA [None]
  - THERAPEUTIC RESPONSE UNEXPECTED WITH DRUG SUBSTITUTION [None]
